FAERS Safety Report 7620730-8 (Version None)
Quarter: 2011Q3

REPORT INFORMATION
  Report Type: 
  Country: None (occurrence: None)
  Receive Date: 20110719
  Receipt Date: 20110711
  Transmission Date: 20111222
  Serious: Yes (Life-Threatening)
  Sender: FDA-Public Use
  Company Number: GB-GLAXOSMITHKLINE-B0732000A

PATIENT
  Age: 52 Year
  Sex: Male
  Weight: 130 kg

DRUGS (6)
  1. CLARITHROMYCIN [Concomitant]
     Indication: SEPSIS
     Route: 042
     Dates: start: 20110618, end: 20110618
  2. ACETAMINOPHEN [Concomitant]
     Indication: PYREXIA
     Route: 048
     Dates: start: 20110618
  3. LEVOTHYROXINE SODIUM [Concomitant]
     Indication: HYPOTHYROIDISM
     Route: 048
  4. PENICILLIN [Concomitant]
     Indication: SEPSIS
     Route: 042
     Dates: start: 20110618, end: 20110618
  5. ZOVIRAX [Suspect]
     Indication: VIRAL INFECTION
     Route: 042
     Dates: start: 20110618, end: 20110618
  6. CYCLIZINE [Concomitant]
     Indication: NAUSEA
     Route: 030
     Dates: start: 20110618

REACTIONS (4)
  - RASH [None]
  - SPUTUM ABNORMAL [None]
  - WHEEZING [None]
  - DYSPNOEA [None]
